FAERS Safety Report 10147786 (Version 2)
Quarter: 2014Q2

REPORT INFORMATION
  Report Type: Spontaneous
  Country: US (occurrence: US)
  Receive Date: 20140501
  Receipt Date: 20140602
  Transmission Date: 20141212
  Serious: No
  Sender: FDA-Public Use
  Company Number: US-AMGEN-USASP2014024400

PATIENT
  Age: 71 Year
  Sex: Male

DRUGS (2)
  1. ENBREL [Suspect]
     Indication: RHEUMATOID ARTHRITIS
     Dosage: 50 MG, QWK
     Route: 065
     Dates: start: 20130716, end: 20140320
  2. ENBREL [Suspect]
     Dosage: UNK
     Route: 065

REACTIONS (15)
  - Acne [Not Recovered/Not Resolved]
  - Rash pruritic [Not Recovered/Not Resolved]
  - Rash macular [Unknown]
  - Erythema [Unknown]
  - Paranasal sinus hypersecretion [Not Recovered/Not Resolved]
  - Sinus headache [Not Recovered/Not Resolved]
  - Choking sensation [Not Recovered/Not Resolved]
  - Cough [Not Recovered/Not Resolved]
  - Malaise [Unknown]
  - Liver function test abnormal [Unknown]
  - Pruritus generalised [Not Recovered/Not Resolved]
  - Impaired healing [Unknown]
  - Laceration [Unknown]
  - Nasopharyngitis [Unknown]
  - Influenza [Unknown]
